FAERS Safety Report 11184860 (Version 3)
Quarter: 2015Q3

REPORT INFORMATION
  Report Type: Spontaneous
  Country: US (occurrence: US)
  Receive Date: 20150612
  Receipt Date: 20150702
  Transmission Date: 20151125
  Serious: No
  Sender: FDA-Public Use
  Company Number: 2015SP001996

PATIENT
  Age: 62 Year
  Sex: Female

DRUGS (8)
  1. LATUDA [Suspect]
     Active Substance: LURASIDONE HYDROCHLORIDE
     Indication: DEPRESSION
     Route: 048
     Dates: start: 20150519, end: 20150526
  2. PAROXETINE [Concomitant]
     Active Substance: PAROXETINE\PAROXETINE HYDROCHLORIDE
     Route: 048
  3. LATUDA [Suspect]
     Active Substance: LURASIDONE HYDROCHLORIDE
     Indication: POST-TRAUMATIC STRESS DISORDER
     Route: 048
     Dates: start: 20150519, end: 20150526
  4. LATUDA [Suspect]
     Active Substance: LURASIDONE HYDROCHLORIDE
     Indication: INSOMNIA
     Route: 048
     Dates: start: 20150519, end: 20150526
  5. THYROID THERAPY [Concomitant]
     Active Substance: UNSPECIFIED INGREDIENT
  6. CLONAZEPAM. [Concomitant]
     Active Substance: CLONAZEPAM
  7. LATUDA [Suspect]
     Active Substance: LURASIDONE HYDROCHLORIDE
     Indication: ANXIETY
     Route: 048
     Dates: start: 20150519, end: 20150526
  8. SEROQUEL [Suspect]
     Active Substance: QUETIAPINE FUMARATE
     Dates: start: 20150527

REACTIONS (19)
  - Aggression [Recovering/Resolving]
  - Pollakiuria [Recovering/Resolving]
  - Abnormal behaviour [Recovering/Resolving]
  - Blood pressure abnormal [Recovering/Resolving]
  - Abasia [Recovered/Resolved]
  - Depression [Recovering/Resolving]
  - Disorganised speech [Recovering/Resolving]
  - Confusional state [Recovering/Resolving]
  - Disturbance in attention [Not Recovered/Not Resolved]
  - Off label use [Unknown]
  - Palpitations [Recovering/Resolving]
  - Anxiety [Recovering/Resolving]
  - Muscle spasms [Recovered/Resolved]
  - Mood altered [Recovering/Resolving]
  - Restlessness [Recovering/Resolving]
  - Somnolence [Recovering/Resolving]
  - Impulsive behaviour [Recovering/Resolving]
  - Memory impairment [Not Recovered/Not Resolved]
  - Agitation [Recovering/Resolving]

NARRATIVE: CASE EVENT DATE: 2015
